FAERS Safety Report 4487724-5 (Version None)
Quarter: 2004Q4

REPORT INFORMATION
  Report Type: 
  Country: None (occurrence: None)
  Receive Date: 20041027
  Receipt Date: 20041027
  Transmission Date: 20050328
  Serious: Yes (Hospitalization)
  Sender: FDA-Public Use
  Company Number: None

PATIENT
  Age: 71 Year
  Sex: Male
  Weight: 89.3586 kg

DRUGS (6)
  1. PACLITAXEL [Suspect]
     Indication: NON-SMALL CELL LUNG CANCER
     Dosage: 105-360 MG/500 ML NG
  2. CARBOPLATIN [Suspect]
     Dosage: 460 MG /100 ML NS
  3. CLOPIDOGREL [Concomitant]
  4. DURBOPOETIN [Concomitant]
  5. FELODIPINE [Concomitant]
  6. GABAPENTIN [Concomitant]

REACTIONS (7)
  - CHILLS [None]
  - FATIGUE [None]
  - INFUSION SITE REACTION [None]
  - INJECTION SITE ERYTHEMA [None]
  - INJECTION SITE OEDEMA [None]
  - NEUTROPENIA [None]
  - PYREXIA [None]
